FAERS Safety Report 9009055 (Version 3)
Quarter: 2013Q1

REPORT INFORMATION
  Report Type: Report from Study
  Country: US (occurrence: US)
  Receive Date: 20130111
  Receipt Date: 20130208
  Transmission Date: 20140127
  Serious: Yes (Other)
  Sender: FDA-Public Use
  Company Number: US-BAYER-2012-126608

PATIENT
  Age: 62 Year
  Sex: Male

DRUGS (5)
  1. STIVARGA [Suspect]
     Indication: COLON CANCER
     Dosage: 120 MG, QD (40 MG 3 TABLETS DAILY)
     Route: 048
     Dates: start: 20121026, end: 20121109
  2. STIVARGA [Suspect]
     Indication: COLON CANCER
     Dosage: UNK
     Dates: start: 20121116
  3. STIVARGA [Suspect]
     Indication: COLON CANCER
     Dosage: 1 PILL A DAY FOR ONE WEEK
  4. STIVARGA [Suspect]
     Indication: COLON CANCER
     Dosage: 120 MG, QD
     Route: 048
  5. STIVARGA [Suspect]
     Indication: COLON CANCER
     Dosage: 160 MG, QD
     Route: 048
     Dates: start: 20130126

REACTIONS (10)
  - Abasia [Recovering/Resolving]
  - Blister [Not Recovered/Not Resolved]
  - Vision blurred [Not Recovered/Not Resolved]
  - Abdominal pain upper [Not Recovered/Not Resolved]
  - Sinus headache [Not Recovered/Not Resolved]
  - Sinus congestion [Not Recovered/Not Resolved]
  - Fatigue [Not Recovered/Not Resolved]
  - Pain in extremity [Recovering/Resolving]
  - Palmar-plantar erythrodysaesthesia syndrome [Not Recovered/Not Resolved]
  - Skin exfoliation [Not Recovered/Not Resolved]
